FAERS Safety Report 6244299-8 (Version None)
Quarter: 2009Q2

REPORT INFORMATION
  Report Type: 
  Country: None (occurrence: None)
  Receive Date: 20090623
  Receipt Date: 20090623
  Transmission Date: 20091009
  Serious: Yes (Hospitalization)
  Sender: FDA-Public Use
  Company Number: None

PATIENT
  Age: 43 Year
  Sex: Female
  Weight: 52.1637 kg

DRUGS (2)
  1. DOXORUBICIN HCL [Suspect]
     Indication: BREAST CANCER
     Dosage: 89 MG Q 2 WEEKS X 4 CYCLES IV
     Route: 042
     Dates: start: 20090514
  2. CYCLOPHOSPHAMIDE [Suspect]
     Indication: BREAST CANCER
     Dosage: 885 MG Q 2 WKS X 4 CYCLES IV
     Route: 042
     Dates: start: 20090514

REACTIONS (6)
  - BODY TEMPERATURE INCREASED [None]
  - COUGH [None]
  - HAEMOGLOBIN DECREASED [None]
  - MYALGIA [None]
  - PERIORBITAL CELLULITIS [None]
  - RHINORRHOEA [None]
